FAERS Safety Report 16693911 (Version 1)
Quarter: 2019Q3

REPORT INFORMATION
  Report Type: Spontaneous
  Country: JP (occurrence: JP)
  Receive Date: 20190812
  Receipt Date: 20190812
  Transmission Date: 20191004
  Serious: Yes (Life-Threatening)
  Sender: FDA-Public Use
  Company Number: JP-SYNEX-T201905506

PATIENT
  Age: 2 Day
  Sex: Male
  Weight: 1.4 kg

DRUGS (2)
  1. INOFLO [Suspect]
     Active Substance: NITRIC OXIDE
     Indication: NEWBORN PERSISTENT PULMONARY HYPERTENSION
     Dosage: 10 PPM (INHALATIONAL)
     Route: 055
     Dates: start: 2017, end: 2017
  2. PULMONARY SURFACTANT NOS [Concomitant]
     Indication: PRODUCT USED FOR UNKNOWN INDICATION
     Dosage: UNK
     Route: 065

REACTIONS (7)
  - Aneurysm ruptured [Recovered/Resolved]
  - Hypotension [Recovered/Resolved]
  - Product use issue [Unknown]
  - Bradycardia [Recovered/Resolved]
  - Sepsis neonatal [Recovered/Resolved]
  - Leukopenia [Recovered/Resolved]
  - Shock haemorrhagic [Recovered/Resolved]

NARRATIVE: CASE EVENT DATE: 2017
